FAERS Safety Report 6548929-2 (Version None)
Quarter: 2010Q1

REPORT INFORMATION
  Report Type: 
  Country: None (occurrence: None)
  Receive Date: 20100125
  Receipt Date: 20100115
  Transmission Date: 20100710
  Serious: Yes (Death, Hospitalization, Other)
  Sender: FDA-Public Use
  Company Number: US-BIOGENIDEC-2009BI019847

PATIENT
  Age: 57 Year
  Sex: Female

DRUGS (3)
  1. AVONEX [Suspect]
     Indication: MULTIPLE SCLEROSIS
     Route: 030
     Dates: start: 20080401, end: 20090901
  2. AVONEX [Suspect]
     Route: 030
     Dates: start: 19961101
  3. AVONEX [Suspect]
     Route: 030

REACTIONS (5)
  - CONVULSION [None]
  - DIVERTICULITIS [None]
  - MALIGNANT MELANOMA [None]
  - METASTATIC MALIGNANT MELANOMA [None]
  - URINARY TRACT INFECTION [None]
